FAERS Safety Report 24553304 (Version 1)
Quarter: 2024Q4

REPORT INFORMATION
  Report Type: Spontaneous
  Country: GB (occurrence: GB)
  Receive Date: 20241028
  Receipt Date: 20241028
  Transmission Date: 20250115
  Serious: Yes (Other)
  Sender: TEVA
  Company Number: GB-MHRA-TPP40268806C21157870YC1729093169547

PATIENT
  Age: 84 Year
  Sex: Female
  Weight: 68 kg

DRUGS (7)
  1. AMLODIPINE [Suspect]
     Active Substance: AMLODIPINE BESYLATE
     Indication: Ill-defined disorder
     Route: 065
     Dates: start: 20240312
  2. HYDROCORTISONE [Concomitant]
     Active Substance: HYDROCORTISONE
     Indication: Ill-defined disorder
     Dosage: APPLY THIN LAYER TWICE DAILY, TPP YC - PLEASE RECLASSIFY
     Dates: start: 20240723, end: 20240806
  3. LATANOPROST [Concomitant]
     Active Substance: LATANOPROST
     Indication: Ill-defined disorder
     Dosage: ONE DROP ONCE DAILY TO BOTH EYES, TPP YC - PLEASE RECLASSIFY
     Route: 047
     Dates: start: 20210927
  4. PROLIA [Concomitant]
     Active Substance: DENOSUMAB
     Indication: Ill-defined disorder
     Dosage: USE AS DIRECTED EVERY 6 MONTHS, TPP YC - PLEASE RECLASSIFY
     Dates: start: 20230525
  5. OMEPRAZOLE [Concomitant]
     Active Substance: OMEPRAZOLE
     Indication: Ill-defined disorder
     Dosage: TPP YC - PLEASE RECLASSIFY
     Dates: start: 20240424
  6. ADCAL [Concomitant]
     Indication: Ill-defined disorder
     Dosage: AT LUNCHTIME, TPP YC - PLEASE RECLASSIFY
     Dates: start: 20230525
  7. FLUTICASONE PROPIONATE [Concomitant]
     Active Substance: FLUTICASONE PROPIONATE
     Indication: Ill-defined disorder
     Dosage: TPP YC - PLEASE RECLASSIFY
     Dates: start: 20230425

REACTIONS (2)
  - Joint swelling [Unknown]
  - Rash [Unknown]
